FAERS Safety Report 9108145 (Version 1)
Quarter: 2013Q1

REPORT INFORMATION
  Report Type: Spontaneous
  Country: IL (occurrence: IL)
  Receive Date: 20130221
  Receipt Date: 20130221
  Transmission Date: 20140127
  Serious: Yes (Death)
  Sender: FDA-Public Use
  Company Number: IL-ASTRAZENECA-2013SE11104

PATIENT
  Age: 7 Month
  Sex: Male

DRUGS (4)
  1. SYNAGIS [Suspect]
     Indication: ANTIVIRAL PROPHYLAXIS
     Route: 030
     Dates: start: 201211, end: 201211
  2. SYNAGIS [Suspect]
     Indication: ANTIVIRAL PROPHYLAXIS
     Route: 030
     Dates: start: 201212, end: 201212
  3. SYNAGIS [Suspect]
     Indication: ANTIVIRAL PROPHYLAXIS
     Route: 030
     Dates: start: 20121231, end: 20121231
  4. INHALATIONS [Concomitant]

REACTIONS (6)
  - Respiratory failure [Fatal]
  - Pulmonary arterial hypertension [Fatal]
  - Bronchiolitis [Unknown]
  - Adenovirus test positive [Unknown]
  - Respiratory syncytial virus test positive [Unknown]
  - Inappropriate schedule of drug administration [Unknown]
